FAERS Safety Report 5044474-4 (Version None)
Quarter: 2006Q2

REPORT INFORMATION
  Report Type: 
  Country: None (occurrence: None)
  Receive Date: 20060601
  Receipt Date: 20060327
  Transmission Date: 20061013
  Serious: No
  Sender: FDA-Public Use
  Company Number: US200603006329

PATIENT
  Age: 36 Year
  Sex: Female

DRUGS (5)
  1. CYMBALTA [Suspect]
     Indication: FIBROMYALGIA
     Dosage: 30 MG, EACH MORNING, ORAL
     Route: 048
     Dates: start: 20060321
  2. ELAVIL [Concomitant]
  3. FLEXERIL [Concomitant]
  4. YASMIN [Concomitant]
  5. ACIPHEX [Concomitant]

REACTIONS (7)
  - ACTIVITIES OF DAILY LIVING IMPAIRED [None]
  - ASTHENIA [None]
  - FATIGUE [None]
  - FEELING ABNORMAL [None]
  - HYPERHIDROSIS [None]
  - NAUSEA [None]
  - SOMNOLENCE [None]
